FAERS Safety Report 4882970-0 (Version None)
Quarter: 2006Q1

REPORT INFORMATION
  Report Type: 
  Country: None (occurrence: None)
  Receive Date: 20060118
  Receipt Date: 20051122
  Transmission Date: 20060701
  Serious: Yes (Hospitalization)
  Sender: FDA-Public Use
  Company Number: GBWYE162122NOV05

PATIENT
  Sex: Male

DRUGS (7)
  1. ENBREL [Suspect]
     Indication: RHEUMATOID ARTHRITIS
     Route: 058
     Dates: start: 20041014, end: 20050812
  2. METHOTREXATE [Concomitant]
     Route: 065
  3. PREDNISOLONE [Concomitant]
     Route: 065
  4. CO-DYDRAMOL [Concomitant]
     Route: 065
  5. DICLOFENAC [Concomitant]
     Route: 065
  6. FOLIC ACID [Concomitant]
     Route: 065
  7. VITAMIN B-12 [Concomitant]
     Route: 065

REACTIONS (2)
  - GASTROINTESTINAL CARCINOMA [None]
  - RECURRENT CANCER [None]
